FAERS Safety Report 6812138-X (Version None)
Quarter: 2010Q3

REPORT INFORMATION
  Report Type: 
  Country: None (occurrence: None)
  Receive Date: 20100701
  Receipt Date: 20091002
  Transmission Date: 20110219
  Serious: No
  Sender: FDA-Public Use
  Company Number: US-ABBOTT-09P-163-0600571-00

PATIENT
  Sex: Female
  Weight: 2.67 kg

DRUGS (7)
  1. RITONAVIR [Suspect]
     Indication: DRUG EXPOSURE DURING PREGNANCY
     Route: 064
  2. ZIDOVUDINE [Suspect]
     Indication: DRUG EXPOSURE DURING PREGNANCY
     Route: 064
  3. COMBIVIR [Suspect]
     Indication: DRUG EXPOSURE DURING PREGNANCY
     Route: 064
  4. INVIRASE [Suspect]
     Indication: DRUG EXPOSURE DURING PREGNANCY
     Route: 064
  5. VIREAD [Suspect]
     Indication: DRUG EXPOSURE DURING PREGNANCY
     Route: 064
  6. LEXIVA [Suspect]
     Indication: DRUG EXPOSURE DURING PREGNANCY
     Route: 064
  7. TRIZIVIR [Suspect]
     Indication: DRUG EXPOSURE DURING PREGNANCY
     Route: 064

REACTIONS (3)
  - DRUG EXPOSURE DURING PREGNANCY [None]
  - NORMAL NEWBORN [None]
  - ULTRASOUND ANTENATAL SCREEN ABNORMAL [None]
